FAERS Safety Report 18047335 (Version 1)
Quarter: 2020Q3

REPORT INFORMATION
  Report Type: Spontaneous
  Country: KW (occurrence: KW)
  Receive Date: 20200721
  Receipt Date: 20200721
  Transmission Date: 20201103
  Serious: Yes (Other)
  Sender: FDA-Public Use
  Company Number: KW-LUPIN PHARMACEUTICALS INC.-2020-03454

PATIENT
  Age: 10 Year
  Sex: Male

DRUGS (5)
  1. RISPERIDONE. [Concomitant]
     Active Substance: RISPERIDONE
     Indication: AUTISM SPECTRUM DISORDER
     Dosage: 1 MILLILITER, QD
     Route: 065
  2. LEVETIRACETAM. [Suspect]
     Active Substance: LEVETIRACETAM
     Indication: EPILEPSY
     Dosage: 500 MILLIGRAM, QD
     Route: 065
  3. ARIPIPRAZOLE. [Suspect]
     Active Substance: ARIPIPRAZOLE
     Indication: AUTISM SPECTRUM DISORDER
     Dosage: 10 MILLIGRAM
     Route: 065
  4. VALPROIC ACID. [Concomitant]
     Active Substance: VALPROIC ACID
     Indication: EPILEPSY
     Dosage: 1000 MILLIGRAM, QD
     Route: 065
  5. RISPERIDONE. [Concomitant]
     Active Substance: RISPERIDONE
     Dosage: 1.5 MILLILITER, QD (IN 2 DIVIDED DOSES)
     Route: 065

REACTIONS (5)
  - Behaviour disorder [Recovered/Resolved]
  - Drug ineffective [Unknown]
  - Intentional self-injury [Recovered/Resolved]
  - Psychomotor hyperactivity [Recovered/Resolved]
  - Aggression [Recovered/Resolved]
